FAERS Safety Report 4646721-7 (Version None)
Quarter: 2005Q2

REPORT INFORMATION
  Report Type: 
  Country: None (occurrence: None)
  Receive Date: 20050427
  Receipt Date: 20041203
  Transmission Date: 20051028
  Serious: Yes (Other)
  Sender: FDA-Public Use
  Company Number: GB-GLAXOSMITHKLINE-B0359642A

PATIENT
  Sex: Male

DRUGS (4)
  1. SEROXAT [Suspect]
     Route: 065
  2. TEMAZEPAM [Concomitant]
  3. VIAGRA [Concomitant]
  4. DOTHIEPIN HYDROCHLORIDE [Concomitant]

REACTIONS (7)
  - AGGRESSION [None]
  - ANGER [None]
  - ERECTILE DYSFUNCTION [None]
  - ILL-DEFINED DISORDER [None]
  - IRRITABILITY [None]
  - LIBIDO DECREASED [None]
  - SUICIDE ATTEMPT [None]
